FAERS Safety Report 8600911 (Version 2)
Quarter: 2012Q4

REPORT INFORMATION
  Report Type: Report from Study
  Country: US (occurrence: US)
  Receive Date: 20120606
  Receipt Date: 20120910
  Transmission Date: 20130627
  Serious: Yes (Hospitalization)
  Sender: FDA-Public Use
  Company Number: US-TEVA-340934USA

PATIENT
  Age: 56 Year
  Sex: Male
  Weight: 106.4 kg

DRUGS (11)
  1. TREANDA [Suspect]
     Indication: ACUTE MYELOID LEUKAEMIA
     Route: 042
     Dates: start: 20120514, end: 20120518
  2. IDARUBICIN [Suspect]
     Indication: ACUTE MYELOID LEUKAEMIA
     Route: 042
     Dates: start: 20120514, end: 20120515
  3. ACICLOVIR [Concomitant]
     Dosage: bid
     Route: 048
  4. FLUCONAZOLE [Concomitant]
     Dosage: 200 Milligram Daily;
     Route: 048
  5. CIPROFLOXACIN [Concomitant]
     Dosage: bid
     Route: 048
  6. EZETIMIBE [Concomitant]
     Dosage: qHS
     Route: 048
  7. ROSUVASTATIN [Concomitant]
     Dosage: qHS
     Route: 048
  8. DOCUSATE [Concomitant]
     Indication: CONSTIPATION
     Dosage: bid
     Route: 048
  9. SENNA ALEXANDRINA [Concomitant]
     Indication: CONSTIPATION
  10. SALBUTAMOL [Concomitant]
     Dosage: 2 puffs q4h prn
  11. OXYCODONE [Concomitant]
     Indication: PAIN
     Dosage: q 4-6h

REACTIONS (1)
  - Febrile neutropenia [Recovered/Resolved]
